FAERS Safety Report 20793429 (Version 5)
Quarter: 2023Q1

REPORT INFORMATION
  Report Type: Spontaneous
  Country: CA (occurrence: CA)
  Receive Date: 20220506
  Receipt Date: 20230112
  Transmission Date: 20230417
  Serious: Yes (Other)
  Sender: FDA-Public Use
  Company Number: CA-CELLTRION INC.-2022CA006048

PATIENT

DRUGS (2)
  1. INFLECTRA [Suspect]
     Active Substance: INFLIXIMAB-DYYB
     Indication: Crohn^s disease
     Dosage: 1 DF
     Route: 042
     Dates: start: 202203, end: 2022
  2. INFLECTRA [Suspect]
     Active Substance: INFLIXIMAB-DYYB
     Dosage: 700 MG, EVERY 8 WEEKS
     Route: 042
     Dates: start: 20220527

REACTIONS (5)
  - Pyrexia [Not Recovered/Not Resolved]
  - Malaise [Unknown]
  - Oropharyngeal discomfort [Unknown]
  - Chest discomfort [Unknown]
  - Cough [Unknown]

NARRATIVE: CASE EVENT DATE: 20220101
